FAERS Safety Report 16887409 (Version 2)
Quarter: 2020Q1

REPORT INFORMATION
  Report Type: Spontaneous
  Country: US (occurrence: US)
  Receive Date: 20191004
  Receipt Date: 20200108
  Transmission Date: 20200409
  Serious: Yes (Hospitalization)
  Sender: FDA-Public Use
  Company Number: US-BRISTOL-MYERS SQUIBB COMPANY-BMS-2019-093817

PATIENT
  Sex: Male
  Weight: 104.31 kg

DRUGS (2)
  1. YERVOY [Suspect]
     Active Substance: IPILIMUMAB
     Indication: RENAL CANCER
     Dosage: UNK
     Route: 065
     Dates: start: 201903, end: 201905
  2. OPDIVO [Suspect]
     Active Substance: NIVOLUMAB
     Indication: RENAL CANCER
     Dosage: 2
     Route: 065
     Dates: start: 201903, end: 201905

REACTIONS (2)
  - Colitis [Unknown]
  - Weight decreased [Unknown]
